FAERS Safety Report 8406273-2 (Version None)
Quarter: 2012Q2

REPORT INFORMATION
  Report Type: 
  Country: None (occurrence: None)
  Receive Date: 20120604
  Receipt Date: 20120529
  Transmission Date: 20120825
  Serious: Yes (Other)
  Sender: FDA-Public Use
  Company Number: PHEH2011US00507

PATIENT
  Sex: Female

DRUGS (4)
  1. AUGMENTIN '125' [Concomitant]
  2. ZOMETA [Suspect]
     Route: 042
     Dates: end: 20090701
  3. CHLORHEXIDINE GLUCONATE [Concomitant]
     Dosage: 1 CAPFUL TWICE DAILY FOR 1 MINUTE
  4. METRONIDAZOLE [Concomitant]

REACTIONS (16)
  - GINGIVAL SWELLING [None]
  - VARICELLA [None]
  - PAIN [None]
  - DISABILITY [None]
  - DEFORMITY [None]
  - EMOTIONAL DISTRESS [None]
  - GINGIVAL INFECTION [None]
  - SYNCOPE [None]
  - ANAEMIA [None]
  - INJURY [None]
  - HEADACHE [None]
  - INFECTION [None]
  - TOOTH ABSCESS [None]
  - OSTEONECROSIS OF JAW [None]
  - GINGIVAL BLEEDING [None]
  - MULTIPLE MYELOMA [None]
